FAERS Safety Report 26113982 (Version 1)
Quarter: 2025Q4

REPORT INFORMATION
  Report Type: Spontaneous
  Country: GB (occurrence: GB)
  Receive Date: 20251202
  Receipt Date: 20251202
  Transmission Date: 20260117
  Serious: Yes (Other)
  Sender: MYLAN
  Company Number: GB-MHRA-37779264

PATIENT
  Age: 65 Year
  Sex: Female
  Weight: 64 kg

DRUGS (32)
  1. METFORMIN [Interacting]
     Active Substance: METFORMIN HYDROCHLORIDE
     Indication: Diabetes mellitus
     Dosage: 1 GRAM, BID (12 HOURS, FOR 10-15 YEARS)
     Dates: start: 2010, end: 20251018
  2. METFORMIN [Interacting]
     Active Substance: METFORMIN HYDROCHLORIDE
     Dosage: 1 GRAM, BID (12 HOURS, FOR 10-15 YEARS)
     Route: 065
     Dates: start: 2010, end: 20251018
  3. METFORMIN [Interacting]
     Active Substance: METFORMIN HYDROCHLORIDE
     Dosage: 1 GRAM, BID (12 HOURS, FOR 10-15 YEARS)
     Route: 065
     Dates: start: 2010, end: 20251018
  4. METFORMIN [Interacting]
     Active Substance: METFORMIN HYDROCHLORIDE
     Dosage: 1 GRAM, BID (12 HOURS, FOR 10-15 YEARS)
     Dates: start: 2010, end: 20251018
  5. LINEZOLID [Interacting]
     Active Substance: LINEZOLID
     Indication: Infection
     Dosage: 600 MILLIGRAM, BID (12 HOURS)
     Dates: start: 20251004, end: 20251028
  6. LINEZOLID [Interacting]
     Active Substance: LINEZOLID
     Dosage: 600 MILLIGRAM, BID (12 HOURS)
     Route: 048
     Dates: start: 20251004, end: 20251028
  7. LINEZOLID [Interacting]
     Active Substance: LINEZOLID
     Dosage: 600 MILLIGRAM, BID (12 HOURS)
     Route: 048
     Dates: start: 20251004, end: 20251028
  8. LINEZOLID [Interacting]
     Active Substance: LINEZOLID
     Dosage: 600 MILLIGRAM, BID (12 HOURS)
     Dates: start: 20251004, end: 20251028
  9. DAPAGLIFLOZIN [Concomitant]
     Active Substance: DAPAGLIFLOZIN
     Indication: Diabetes mellitus
     Dosage: UNK
  10. DAPAGLIFLOZIN [Concomitant]
     Active Substance: DAPAGLIFLOZIN
     Dosage: UNK
  11. DAPAGLIFLOZIN [Concomitant]
     Active Substance: DAPAGLIFLOZIN
     Dosage: UNK
     Route: 065
  12. DAPAGLIFLOZIN [Concomitant]
     Active Substance: DAPAGLIFLOZIN
     Dosage: UNK
     Route: 065
  13. DAPAGLIFLOZIN [Concomitant]
     Active Substance: DAPAGLIFLOZIN
     Dosage: 10 MILLIGRAM, QD (FOR 10-15 YEARS)
     Dates: start: 201411, end: 20251018
  14. DAPAGLIFLOZIN [Concomitant]
     Active Substance: DAPAGLIFLOZIN
     Dosage: 10 MILLIGRAM, QD (FOR 10-15 YEARS)
     Dates: start: 201411, end: 20251018
  15. DAPAGLIFLOZIN [Concomitant]
     Active Substance: DAPAGLIFLOZIN
     Dosage: 10 MILLIGRAM, QD (FOR 10-15 YEARS)
     Route: 048
     Dates: start: 201411, end: 20251018
  16. DAPAGLIFLOZIN [Concomitant]
     Active Substance: DAPAGLIFLOZIN
     Dosage: 10 MILLIGRAM, QD (FOR 10-15 YEARS)
     Route: 048
     Dates: start: 201411, end: 20251018
  17. LEVETIRACETAM [Concomitant]
     Active Substance: LEVETIRACETAM
     Indication: Meningioma surgery
     Dosage: 500 MILLIGRAM, BID (12 HOURS)
     Dates: start: 20250423
  18. LEVETIRACETAM [Concomitant]
     Active Substance: LEVETIRACETAM
     Dosage: 500 MILLIGRAM, BID (12 HOURS)
     Route: 048
     Dates: start: 20250423
  19. LEVETIRACETAM [Concomitant]
     Active Substance: LEVETIRACETAM
     Dosage: 500 MILLIGRAM, BID (12 HOURS)
     Route: 048
     Dates: start: 20250423
  20. LEVETIRACETAM [Concomitant]
     Active Substance: LEVETIRACETAM
     Dosage: 500 MILLIGRAM, BID (12 HOURS)
     Dates: start: 20250423
  21. APIXABAN [Concomitant]
     Active Substance: APIXABAN
     Indication: Deep vein thrombosis
     Dosage: 5 MILLIGRAM, BID (12 HOURS)
     Dates: start: 20250425
  22. APIXABAN [Concomitant]
     Active Substance: APIXABAN
     Dosage: 5 MILLIGRAM, BID (12 HOURS)
     Route: 048
     Dates: start: 20250425
  23. APIXABAN [Concomitant]
     Active Substance: APIXABAN
     Dosage: 5 MILLIGRAM, BID (12 HOURS)
     Route: 048
     Dates: start: 20250425
  24. APIXABAN [Concomitant]
     Active Substance: APIXABAN
     Dosage: 5 MILLIGRAM, BID (12 HOURS)
     Dates: start: 20250425
  25. ACETAMINOPHEN [Concomitant]
     Active Substance: ACETAMINOPHEN
     Dosage: 1 GRAM (4 DOSE MAX IN 24 HRS)
  26. ACETAMINOPHEN [Concomitant]
     Active Substance: ACETAMINOPHEN
     Dosage: 1 GRAM (4 DOSE MAX IN 24 HRS)
     Route: 048
  27. ACETAMINOPHEN [Concomitant]
     Active Substance: ACETAMINOPHEN
     Dosage: 1 GRAM (4 DOSE MAX IN 24 HRS)
     Route: 048
  28. ACETAMINOPHEN [Concomitant]
     Active Substance: ACETAMINOPHEN
     Dosage: 1 GRAM (4 DOSE MAX IN 24 HRS)
  29. BETAHISTINE [Concomitant]
     Active Substance: BETAHISTINE
     Indication: Vertigo
     Dosage: 48 MILLIGRAM, PRN (16MG THREE TIMES A DAY AS NECESSARY)
  30. BETAHISTINE [Concomitant]
     Active Substance: BETAHISTINE
     Dosage: 48 MILLIGRAM, PRN (16MG THREE TIMES A DAY AS NECESSARY)
     Route: 048
  31. BETAHISTINE [Concomitant]
     Active Substance: BETAHISTINE
     Dosage: 48 MILLIGRAM, PRN (16MG THREE TIMES A DAY AS NECESSARY)
     Route: 048
  32. BETAHISTINE [Concomitant]
     Active Substance: BETAHISTINE
     Dosage: 48 MILLIGRAM, PRN (16MG THREE TIMES A DAY AS NECESSARY)

REACTIONS (6)
  - Hypoglycaemia [Recovered/Resolved]
  - Drug interaction [Unknown]
  - Tremor [Unknown]
  - Dizziness [Unknown]
  - Malaise [Unknown]
  - Nausea [Unknown]

NARRATIVE: CASE EVENT DATE: 20251014
